FAERS Safety Report 4956679-9 (Version None)
Quarter: 2006Q1

REPORT INFORMATION
  Report Type: 
  Country: None (occurrence: None)
  Receive Date: 20060329
  Receipt Date: 20050929
  Transmission Date: 20060701
  Serious: Yes (Death, Life-Threatening, Hospitalization, Other)
  Sender: FDA-Public Use
  Company Number: PHBS2005BE14293

PATIENT
  Age: 79 Year
  Sex: Male

DRUGS (7)
  1. KEPPRA [Suspect]
  2. ASPIRIN [Concomitant]
     Dosage: 100 MG/DAY
     Route: 065
  3. TEMESTA [Concomitant]
     Dosage: 2.5 MG/DAY
     Route: 065
  4. TEGRETOL [Suspect]
     Indication: EPILEPSY
     Dosage: 800 MG, BID
     Route: 048
     Dates: start: 19400101, end: 20050929
  5. ADALAT [Concomitant]
     Dosage: 30 MG/DAY
     Route: 065
  6. ZYRTEC [Concomitant]
     Indication: PRURITUS
  7. OPTERINE JUNIOR [Concomitant]

REACTIONS (48)
  - ACUTE MYOCARDIAL INFARCTION [None]
  - AGRANULOCYTOSIS [None]
  - ALANINE AMINOTRANSFERASE INCREASED [None]
  - ASPARTATE AMINOTRANSFERASE INCREASED [None]
  - ATELECTASIS [None]
  - BLOOD ALKALINE PHOSPHATASE INCREASED [None]
  - BLOOD CHLORIDE DECREASED [None]
  - BLOOD GLUCOSE INCREASED [None]
  - BLOOD LACTATE DEHYDROGENASE INCREASED [None]
  - BLOOD POTASSIUM DECREASED [None]
  - BLOOD SODIUM DECREASED [None]
  - BONE MARROW DISORDER [None]
  - BREATH SOUNDS ABNORMAL [None]
  - BRONCHITIS [None]
  - C-REACTIVE PROTEIN INCREASED [None]
  - CARDIAC FAILURE [None]
  - CIRCULATORY COLLAPSE [None]
  - CONVULSION [None]
  - DYSPNOEA [None]
  - ENCEPHALOPATHY [None]
  - GAMMA-GLUTAMYLTRANSFERASE INCREASED [None]
  - HAEMATOCRIT DECREASED [None]
  - HAEMOGLOBIN DECREASED [None]
  - HEADACHE [None]
  - HEPATOMEGALY [None]
  - HYPOALBUMINAEMIA [None]
  - INTRACRANIAL ANEURYSM [None]
  - LEUKOPENIA [None]
  - LYMPHADENOPATHY MEDIASTINAL [None]
  - MEDIASTINAL MASS [None]
  - METASTASES TO LUNG [None]
  - MYELOCYTE COUNT DECREASED [None]
  - MYELOID MATURATION ARREST [None]
  - NEUTROPHIL COUNT DECREASED [None]
  - NORMOCHROMIC NORMOCYTIC ANAEMIA [None]
  - PLATELET COUNT DECREASED [None]
  - PLEURAL EFFUSION [None]
  - PNEUMONIA [None]
  - PRODUCTIVE COUGH [None]
  - PULMONARY GRANULOMA [None]
  - PYREXIA [None]
  - RALES [None]
  - RASH MACULAR [None]
  - RASH PRURITIC [None]
  - RED BLOOD CELL COUNT DECREASED [None]
  - SPLENOMEGALY [None]
  - T-CELL LYMPHOMA [None]
  - WHITE BLOOD CELL COUNT DECREASED [None]
